FAERS Safety Report 6934819-X (Version None)
Quarter: 2010Q3

REPORT INFORMATION
  Report Type: 
  Country: None (occurrence: None)
  Receive Date: 20100820
  Receipt Date: 20100806
  Transmission Date: 20110219
  Serious: Yes (Hospitalization, Other)
  Sender: FDA-Public Use
  Company Number: PHEH2009US11296

PATIENT
  Sex: Male

DRUGS (3)
  1. EXJADE [Suspect]
     Indication: SICKLE CELL ANAEMIA
     Dosage: 375 MG, QD
     Route: 048
  2. EXJADE [Suspect]
     Dosage: NO TREATMENT
  3. EXJADE [Suspect]
     Dosage: 375 MG, QD
     Route: 048
     Dates: start: 20090812

REACTIONS (15)
  - ABDOMINAL PAIN UPPER [None]
  - ALANINE AMINOTRANSFERASE INCREASED [None]
  - ALOPECIA [None]
  - ASPARTATE AMINOTRANSFERASE INCREASED [None]
  - BLOOD LACTATE DEHYDROGENASE INCREASED [None]
  - CHOLELITHIASIS [None]
  - COUGH [None]
  - DIARRHOEA [None]
  - DYSURIA [None]
  - GASTROOESOPHAGEAL REFLUX DISEASE [None]
  - LIVER DISORDER [None]
  - PROTEIN URINE [None]
  - SPLENECTOMY [None]
  - TIC [None]
  - VOMITING [None]
